FAERS Safety Report 10513218 (Version 2)
Quarter: 2014Q4

REPORT INFORMATION
  Report Type: Spontaneous
  Country: PT (occurrence: PT)
  Receive Date: 20141013
  Receipt Date: 20141029
  Transmission Date: 20150528
  Serious: Yes (Disabling, Other)
  Sender: FDA-Public Use
  Company Number: PT-TEVA-514486ISR

PATIENT
  Age: 54 Year
  Sex: Female

DRUGS (2)
  1. PAMIDRONIC ACID [Concomitant]
     Active Substance: PAMIDRONIC ACID
     Indication: OSTEITIS DEFORMANS
     Route: 042
  2. ALENDRONIC ACID [Suspect]
     Active Substance: ALENDRONIC ACID
     Indication: OSTEOPOROSIS

REACTIONS (6)
  - Bone pain [Recovering/Resolving]
  - Headache [Recovering/Resolving]
  - Dementia [Unknown]
  - Off label use [Unknown]
  - Head deformity [Unknown]
  - Gait disturbance [Recovering/Resolving]
